FAERS Safety Report 4610065-X (Version None)
Quarter: 2005Q1

REPORT INFORMATION
  Report Type: 
  Country: None (occurrence: None)
  Receive Date: 20050316
  Receipt Date: 20050308
  Transmission Date: 20050727
  Serious: Yes (Hospitalization, Disabling)
  Sender: FDA-Public Use
  Company Number: ES-GLAXOSMITHKLINE-B0374718A

PATIENT
  Age: 62 Year
  Sex: Female
  Weight: 65 kg

DRUGS (1)
  1. PAROXETINE HCL [Suspect]
     Dosage: 1TAB PER DAY
     Route: 048
     Dates: start: 19980101, end: 20041101

REACTIONS (2)
  - RETINAL DISORDER [None]
  - VISUAL ACUITY REDUCED [None]
